FAERS Safety Report 14715701 (Version 2)
Quarter: 2018Q2

REPORT INFORMATION
  Report Type: Report from Study
  Country: US (occurrence: US)
  Receive Date: 20180404
  Receipt Date: 20180423
  Transmission Date: 20180711
  Serious: Yes (Death, Hospitalization)
  Sender: FDA-Public Use
  Company Number: US-ACTELION-A-US2016-140524

PATIENT
  Age: 72 Year
  Sex: Female

DRUGS (9)
  1. UPTRAVI [Suspect]
     Active Substance: SELEXIPAG
     Dosage: 1600 MCG, BID
     Route: 048
     Dates: start: 20160826
  2. ADCIRCA [Concomitant]
     Active Substance: TADALAFIL
     Dosage: UNK
     Dates: start: 20151222
  3. AMBRISENTAN [Suspect]
     Active Substance: AMBRISENTAN
     Indication: PULMONARY HYPERTENSION
     Dosage: 10 UNK, UNK
     Route: 065
     Dates: start: 20161129
  4. UPTRAVI [Suspect]
     Active Substance: SELEXIPAG
     Indication: PULMONARY ARTERIAL HYPERTENSION
     Dosage: 1200 MCG, BID
     Route: 048
     Dates: start: 20160706, end: 20180325
  5. UPTRAVI [Suspect]
     Active Substance: SELEXIPAG
     Dosage: 100 MCG, BID
     Route: 048
  6. AMBRISENTAN [Suspect]
     Active Substance: AMBRISENTAN
     Dosage: 5 MG, QD
     Route: 065
     Dates: start: 20151215
  7. UPTRAVI [Suspect]
     Active Substance: SELEXIPAG
     Dosage: 1000 MCG, BID
     Route: 048
     Dates: start: 20160705
  8. UPTRAVI [Suspect]
     Active Substance: SELEXIPAG
     Dosage: 200 MCG, BID
     Route: 048
     Dates: start: 20160708
  9. UPTRAVI [Suspect]
     Active Substance: SELEXIPAG
     Dosage: 3200 MCG, BID
     Route: 048
     Dates: start: 20160826

REACTIONS (22)
  - Drug intolerance [Unknown]
  - Fluid retention [Unknown]
  - Scleroderma [Fatal]
  - Dehydration [Unknown]
  - Diarrhoea [Unknown]
  - Headache [Unknown]
  - Infection [Unknown]
  - Cardiac disorder [Unknown]
  - Localised infection [Unknown]
  - Dyspnoea exertional [Unknown]
  - Dry mouth [Unknown]
  - Skin discolouration [Unknown]
  - Dizziness [Unknown]
  - Nausea [Unknown]
  - Therapy non-responder [Unknown]
  - Disease complication [Fatal]
  - Dyspnoea [Recovering/Resolving]
  - Malaise [Unknown]
  - Chest pain [Unknown]
  - Disease progression [Unknown]
  - Overdose [Unknown]
  - Lethargy [Unknown]

NARRATIVE: CASE EVENT DATE: 20160708
